FAERS Safety Report 6286778-3 (Version None)
Quarter: 2009Q3

REPORT INFORMATION
  Report Type: 
  Country: None (occurrence: None)
  Receive Date: 20090728
  Receipt Date: 20090723
  Transmission Date: 20100115
  Serious: Yes (Hospitalization, Disabling)
  Sender: FDA-Public Use
  Company Number: US-PFIZER INC-2009245089

PATIENT
  Sex: Male

DRUGS (6)
  1. BLINDED *NO SUBJECT DRUG [Suspect]
     Indication: PULMONARY HYPERTENSION
     Dosage: UNK
     Route: 048
     Dates: start: 20090225, end: 20090416
  2. BLINDED *PLACEBO [Suspect]
     Indication: PULMONARY HYPERTENSION
     Dosage: UNK
     Route: 048
     Dates: start: 20090225, end: 20090416
  3. BLINDED SILDENAFIL CITRATE [Suspect]
     Indication: PULMONARY HYPERTENSION
     Dosage: UNK
     Route: 048
     Dates: start: 20090225, end: 20090416
  4. BLINDED *NO SUBJECT DRUG [Suspect]
     Dosage: UNK
     Route: 048
     Dates: start: 20090605
  5. BLINDED *PLACEBO [Suspect]
     Dosage: UNK
     Route: 048
     Dates: start: 20090605
  6. BLINDED SILDENAFIL CITRATE [Suspect]
     Dosage: UNK
     Route: 048
     Dates: start: 20090605

REACTIONS (1)
  - RIGHT VENTRICULAR FAILURE [None]
